FAERS Safety Report 4844732-X (Version None)
Quarter: 2005Q4

REPORT INFORMATION
  Report Type: 
  Country: None (occurrence: None)
  Receive Date: 20051201
  Receipt Date: 20051201
  Transmission Date: 20060501
  Serious: Yes (Hospitalization)
  Sender: FDA-Public Use
  Company Number: None

PATIENT
  Age: 76 Year
  Sex: Male
  Weight: 123.832 kg

DRUGS (12)
  1. DOXIL [Suspect]
     Indication: PROSTATE CANCER METASTATIC
     Dosage: 59 MG   DAY1,8,15; EVERY 28   IV DRIP
     Route: 041
     Dates: start: 20050901, end: 20051110
  2. TAXOTERE [Suspect]
     Dosage: 59 MG   DAY 1 EVERY  28 DAY   IV DRIP
     Route: 041
     Dates: start: 20050901, end: 20051110
  3. COUMADIN [Concomitant]
  4. OXYCODONE [Concomitant]
  5. KYTRIL [Concomitant]
  6. REGLAN [Concomitant]
  7. MEGACE [Concomitant]
  8. FLONASE [Concomitant]
  9. ASPIRIN [Concomitant]
  10. LISINOPRIL [Concomitant]
  11. MULTI-VIT [Concomitant]
  12. DURAGESIC-100 [Concomitant]

REACTIONS (4)
  - ASTHENIA [None]
  - FALL [None]
  - NAUSEA [None]
  - VOMITING [None]
